FAERS Safety Report 9197809 (Version 1)
Quarter: 2013Q1

REPORT INFORMATION
  Report Type: Spontaneous
  Country: US (occurrence: US)
  Receive Date: 20130328
  Receipt Date: 20130328
  Transmission Date: 20140127
  Serious: No
  Sender: FDA-Public Use
  Company Number: US-GALDERMA-US-GDP-12412755

PATIENT
  Age: 80 None
  Sex: Female
  Weight: 77 kg

DRUGS (11)
  1. CLOBEX [Suspect]
     Indication: SKIN IRRITATION
     Route: 061
     Dates: start: 20120103, end: 20120103
  2. QVAR [Concomitant]
     Indication: ASTHMA
     Route: 055
     Dates: start: 1980
  3. THEOPHYLLINE [Concomitant]
     Indication: HYPERSENSITIVITY
     Route: 048
     Dates: start: 1980
  4. THEOPHYLLINE [Concomitant]
     Indication: ASTHMA
  5. CHLOR-TRIMETON [Concomitant]
     Indication: HYPERSENSITIVITY
     Route: 048
     Dates: start: 1956
  6. CHLOR-TRIMETON [Concomitant]
     Indication: ASTHMA
  7. ARMOUR THYROID [Concomitant]
     Indication: HYPOTHYROIDISM
     Route: 048
     Dates: start: 1955
  8. FEXOFENADINE [Concomitant]
     Indication: HYPERSENSITIVITY
     Route: 048
  9. FEXOFENADINE [Concomitant]
     Indication: ASTHMA
  10. OMEGA 3 AND KRILL [Concomitant]
     Route: 048
     Dates: start: 201111
  11. MULTIVITAMIN WITH MINERALS [Concomitant]
     Route: 048
     Dates: start: 201111

REACTIONS (6)
  - Cheilitis [Not Recovered/Not Resolved]
  - Pigmentation disorder [Not Recovered/Not Resolved]
  - Pain [Not Recovered/Not Resolved]
  - Contusion [Not Recovered/Not Resolved]
  - Skin burning sensation [Not Recovered/Not Resolved]
  - Off label use [None]
